FAERS Safety Report 14665095 (Version 4)
Quarter: 2024Q4

REPORT INFORMATION
  Report Type: Spontaneous
  Country: US (occurrence: US)
  Receive Date: 20180321
  Receipt Date: 20241018
  Transmission Date: 20250115
  Serious: Yes (Hospitalization, Other)
  Sender: SANOFI AVENTIS
  Company Number: US-SA-2018SA081062

PATIENT
  Age: 49 Year
  Sex: Male

DRUGS (11)
  1. LEVOFLOXACIN [Suspect]
     Active Substance: LEVOFLOXACIN
     Indication: Disseminated tuberculosis
     Dosage: 500 MG,UNK
     Route: 048
  2. LEVOFLOXACIN [Suspect]
     Active Substance: LEVOFLOXACIN
     Dosage: UNK
  3. RIFAMPIN [Suspect]
     Active Substance: RIFAMPIN
     Indication: Disseminated tuberculosis
     Dosage: 600 MG,QD
     Route: 042
  4. ADALIMUMAB [Concomitant]
     Active Substance: ADALIMUMAB
     Indication: Rheumatoid arthritis
     Dosage: 40 MG,QW
     Route: 065
  5. LEFLUNOMIDE [Concomitant]
     Active Substance: LEFLUNOMIDE
     Indication: Rheumatoid arthritis
     Dosage: 20 MG,QD
     Route: 065
  6. METHYLPREDNISOLONE [Concomitant]
     Active Substance: METHYLPREDNISOLONE
     Indication: Rheumatoid arthritis
     Dosage: 16 MG,QD
     Route: 065
  7. ISONIAZID [Concomitant]
     Active Substance: ISONIAZID
     Indication: Disseminated tuberculosis
     Dosage: UNK
     Route: 065
  8. PYRAZINAMIDE [Concomitant]
     Active Substance: PYRAZINAMIDE
     Indication: Disseminated tuberculosis
     Dosage: UNK
     Route: 065
  9. PYRAZINAMIDE [Concomitant]
     Active Substance: PYRAZINAMIDE
     Dosage: UNK
     Route: 065
  10. ETHAMBUTOL [Concomitant]
     Active Substance: ETHAMBUTOL HYDROCHLORIDE
     Indication: Disseminated tuberculosis
     Dosage: UNK
     Route: 065
  11. ETHAMBUTOL [Concomitant]
     Active Substance: ETHAMBUTOL HYDROCHLORIDE
     Dosage: UNK
     Route: 065

REACTIONS (2)
  - Electrocardiogram QT prolonged [Unknown]
  - Drug-induced liver injury [Unknown]
